FAERS Safety Report 6565956-X (Version None)
Quarter: 2010Q1

REPORT INFORMATION
  Report Type: 
  Country: None (occurrence: None)
  Receive Date: 20100129
  Receipt Date: 20100129
  Transmission Date: 20100710
  Serious: Yes (Hospitalization)
  Sender: FDA-Public Use
  Company Number: None

PATIENT
  Sex: Female
  Weight: 55 kg

DRUGS (3)
  1. VINORELBINE TARTRATE [Suspect]
     Dosage: 44 MG
     Dates: end: 20100114
  2. CISPLATIN [Suspect]
     Dosage: 111 MG
     Dates: end: 20100114
  3. ZOFRAN [Concomitant]

REACTIONS (2)
  - FAECALOMA [None]
  - INTESTINAL DILATATION [None]
